FAERS Safety Report 23430178 (Version 1)
Quarter: 2024Q1

REPORT INFORMATION
  Report Type: Spontaneous
  Country: US (occurrence: US)
  Receive Date: 20240123
  Receipt Date: 20240123
  Transmission Date: 20240410
  Serious: Yes (Hospitalization, Other)
  Sender: FDA-Public Use
  Company Number: US-BRISTOL-MYERS SQUIBB COMPANY-2024-011210

PATIENT
  Age: 81 Year
  Sex: Female
  Weight: 50.8 kg

DRUGS (4)
  1. ELIQUIS [Suspect]
     Active Substance: APIXABAN
     Indication: Atrial fibrillation
     Route: 048
     Dates: start: 20230403
  2. ATENOLOL [Concomitant]
     Active Substance: ATENOLOL
     Indication: Product used for unknown indication
     Dates: end: 2023
  3. METOPROLOL [Concomitant]
     Active Substance: METOPROLOL
     Indication: Product used for unknown indication
     Dates: start: 2023, end: 2023
  4. METOPROLOL [Concomitant]
     Active Substance: METOPROLOL
     Dates: start: 2023

REACTIONS (6)
  - Fall [Unknown]
  - Femur fracture [Unknown]
  - Oedema [Unknown]
  - Pneumonia [Unknown]
  - COVID-19 [Unknown]
  - Body height decreased [Unknown]

NARRATIVE: CASE EVENT DATE: 20230101
